FAERS Safety Report 19732355 (Version 1)
Quarter: 2021Q3

REPORT INFORMATION
  Report Type: Spontaneous
  Country: FR (occurrence: FR)
  Receive Date: 20210822
  Receipt Date: 20210822
  Transmission Date: 20211014
  Serious: Yes (Death)
  Sender: FDA-Public Use
  Company Number: FR-TEVA-2021-FR-1942945

PATIENT
  Age: 64 Year
  Sex: Female
  Weight: 93.2 kg

DRUGS (10)
  1. TRIMEBUTINE [Suspect]
     Active Substance: TRIMEBUTINE
     Indication: PAIN
     Dosage: 300 MG
     Route: 048
     Dates: start: 202106, end: 20210715
  2. PANTOPRAZOLE MYLAN 40 MG, COMPRIME GASTRO?RESISTANT [Suspect]
     Active Substance: PANTOPRAZOLE SODIUM
     Indication: PRODUCT USED FOR UNKNOWN INDICATION
     Dosage: 40 MG
     Route: 048
     Dates: start: 20210609, end: 20210715
  3. ACUPAN [Suspect]
     Active Substance: NEFOPAM HYDROCHLORIDE
     Indication: PAIN
     Dosage: 60 MG
     Route: 048
     Dates: start: 202106, end: 20210715
  4. PRINCI B (CYANOCOBALAMIN\PYRIDOXINE HYDROCHLORIDE\THIAMINE MONONITRATE) [Suspect]
     Active Substance: CYANOCOBALAMIN\PYRIDOXINE HYDROCHLORIDE\THIAMINE MONONITRATE
     Indication: HYPOVITAMINOSIS
     Dosage: 3 DF
     Route: 048
     Dates: start: 20210617, end: 20210715
  5. DUPHALAC [Suspect]
     Active Substance: LACTULOSE
     Indication: ENCEPHALOPATHY
     Dosage: 2 DF
     Route: 048
     Dates: start: 20210601, end: 20210714
  6. SPASFON LYOC 80 MG, LYOPHILISAT ORAL [Suspect]
     Active Substance: PHLOROGLUCINOL
     Indication: PAIN
     Dosage: 3 DF ,
     Route: 048
     Dates: start: 202106, end: 20210715
  7. LOVENOX [Suspect]
     Active Substance: ENOXAPARIN SODIUM
     Indication: PROPHYLAXIS
     Dosage: 4000 IU
     Dates: start: 20210531, end: 20210621
  8. DIFFU K [Suspect]
     Active Substance: POTASSIUM CHLORIDE
     Indication: HYPOKALAEMIA
     Dosage: 4 DF
     Route: 048
     Dates: start: 20210531, end: 20210606
  9. SPIRONOLACTONE. [Suspect]
     Active Substance: SPIRONOLACTONE
     Indication: HYPERTENSION
     Dosage: 25 MG
     Route: 048
     Dates: start: 20210609, end: 20210714
  10. FUROSEMIDE ARROW 20 MG, COMPRIME SECABLE [Suspect]
     Active Substance: FUROSEMIDE
     Indication: HYPERTENSION
     Dosage: 20 MG
     Route: 048
     Dates: start: 20210609, end: 20210714

REACTIONS (1)
  - Drug reaction with eosinophilia and systemic symptoms [Fatal]

NARRATIVE: CASE EVENT DATE: 20210701
